FAERS Safety Report 8011273-0 (Version None)
Quarter: 2011Q4

REPORT INFORMATION
  Report Type: 
  Country: None (occurrence: None)
  Receive Date: 20111227
  Receipt Date: 20111227
  Transmission Date: 20120403
  Serious: Yes (Other)
  Sender: FDA-Public Use
  Company Number: None

PATIENT
  Age: 28 Year
  Sex: Female
  Weight: 72.574 kg

DRUGS (4)
  1. SEROQUEL [Concomitant]
     Route: 048
  2. LITHIUM [Concomitant]
     Route: 048
  3. ZYPREXA [Concomitant]
     Indication: DEPENDENCE
     Dosage: 40 MG
     Route: 048
     Dates: start: 20111115, end: 20111226
  4. CLOZAPINE [Suspect]
     Indication: POSTPARTUM STRESS DISORDER
     Dosage: 175 MG
     Route: 048
     Dates: start: 20111205, end: 20111222

REACTIONS (4)
  - HEART RATE INCREASED [None]
  - ASPHYXIA [None]
  - CONVULSION [None]
  - DISABILITY [None]
